FAERS Safety Report 25149546 (Version 2)
Quarter: 2025Q2

REPORT INFORMATION
  Report Type: Report from Study
  Country: US (occurrence: US)
  Receive Date: 20250402
  Receipt Date: 20250606
  Transmission Date: 20250716
  Serious: Yes (Other)
  Sender: NOVARTIS
  Company Number: US-002147023-NVSC2025US009481

PATIENT
  Sex: Female

DRUGS (1)
  1. COSENTYX [Suspect]
     Active Substance: SECUKINUMAB
     Indication: Psoriatic arthropathy
     Dosage: 150 MG, QMO
     Route: 058
     Dates: start: 20240701, end: 20241201

REACTIONS (12)
  - Neuropathy peripheral [Unknown]
  - Psoriatic arthropathy [Unknown]
  - Arthralgia [Unknown]
  - Peripheral venous disease [Unknown]
  - Hypercholesterolaemia [Unknown]
  - Asthma [Unknown]
  - Psoriasis [Unknown]
  - Pruritus [Unknown]
  - Depression [Unknown]
  - Anxiety [Unknown]
  - Muscle atrophy [Unknown]
  - Back pain [Unknown]
